FAERS Safety Report 5378486-8 (Version None)
Quarter: 2007Q3

REPORT INFORMATION
  Report Type: 
  Country: None (occurrence: None)
  Receive Date: 20070705
  Receipt Date: 20070621
  Transmission Date: 20080115
  Serious: Yes (Death, Hospitalization, Other)
  Sender: FDA-Public Use
  Company Number: DE-ROCHE-495101

PATIENT
  Age: 38 Year
  Sex: Female
  Weight: 59 kg

DRUGS (10)
  1. PEG-INTERFERON A-2A (RO 25-8310) [Suspect]
     Route: 058
     Dates: start: 20070122
  2. RIBAVIRIN [Suspect]
     Dosage: DOSAGE REGIMEN WAS REPOTED AS 2-0-3. DURATION OF RIBAVIRIN THERAPY WAS REPORTED AS NINE WEEKS.
     Route: 065
     Dates: start: 20070122, end: 20070320
  3. RIBAVIRIN [Suspect]
     Dosage: DOSAGE REGIMEN WAS REPORTED 2-0-3.
     Route: 065
     Dates: start: 20070403
  4. METHADONE HCL [Concomitant]
  5. DIAZEPAM [Concomitant]
  6. CANNABIS [Concomitant]
     Dosage: TAKEN SINCE APPROXIMATELY 4 WEEKS.
  7. CIPROFLOXACIN [Concomitant]
     Dosage: TAKEN FOR 3 DAYS.
  8. ACETAMINOPHEN [Concomitant]
  9. TEGRETOL [Concomitant]
     Dosage: DRUG WAS REPORED AS TEGRETAL RET. DOSAGE REGIMEN: 2 X 400 MG.
  10. TRILEPTAL [Concomitant]

REACTIONS (7)
  - ACUTE RESPIRATORY DISTRESS SYNDROME [None]
  - ALCOHOL WITHDRAWAL SYNDROME [None]
  - ALCOHOLISM [None]
  - DRUG DEPENDENCE [None]
  - ILL-DEFINED DISORDER [None]
  - PNEUMONIA PNEUMOCOCCAL [None]
  - SUBARACHNOID HAEMORRHAGE [None]
